FAERS Safety Report 8112144-1 (Version None)
Quarter: 2012Q1

REPORT INFORMATION
  Report Type: 
  Country: None (occurrence: None)
  Receive Date: 20120203
  Receipt Date: 20120203
  Transmission Date: 20120608
  Serious: Yes (Congenital Anomaly)
  Sender: FDA-Public Use
  Company Number: US-BRACCO-007432

PATIENT

DRUGS (1)
  1. IOPAMIDOL [Suspect]
     Route: 064
     Dates: start: 20111020, end: 20111020

REACTIONS (5)
  - MATERNAL DRUGS AFFECTING FOETUS [None]
  - PREMATURE BABY [None]
  - PATENT DUCTUS ARTERIOSUS [None]
  - FOETAL EXPOSURE DURING PREGNANCY [None]
  - CAESAREAN SECTION [None]
